FAERS Safety Report 10185414 (Version 2)
Quarter: 2014Q2

REPORT INFORMATION
  Report Type: Report from Study
  Country: TR (occurrence: TR)
  Receive Date: 20140521
  Receipt Date: 20140521
  Transmission Date: 20141212
  Serious: Yes (Hospitalization)
  Sender: FDA-Public Use
  Company Number: PHHO2011TR17895

PATIENT
  Sex: 0

DRUGS (4)
  1. SOM230 [Suspect]
     Indication: ACROMEGALY
     Dosage: CORE PHASE
     Dates: start: 20091218
  2. SOM230 [Suspect]
     Dosage: EXTENSION-BLINDED PHASE
     Dates: start: 20101122
  3. HYZAAR [Concomitant]
     Indication: HYPERTENSION
     Dosage: 50 MG, QD
     Route: 048
     Dates: start: 2004
  4. INSULIN [Concomitant]
     Indication: HYPERGLYCAEMIA
     Dosage: UNK
     Dates: start: 20100922

REACTIONS (2)
  - Cholecystitis acute [Recovering/Resolving]
  - Concomitant disease progression [Recovering/Resolving]
